FAERS Safety Report 16463814 (Version 10)
Quarter: 2020Q1

REPORT INFORMATION
  Report Type: Spontaneous
  Country: JP (occurrence: JP)
  Receive Date: 20190621
  Receipt Date: 20200330
  Transmission Date: 20200409
  Serious: Yes (Hospitalization, Other)
  Sender: FDA-Public Use
  Company Number: JP-AMGEN-JPNSP2019097767

PATIENT
  Age: 69 Year
  Sex: Male
  Weight: 72.3 kg

DRUGS (20)
  1. EPOETIN ALFA [Concomitant]
     Active Substance: ERYTHROPOIETIN
     Dosage: 4500 INTERNATIONAL UNIT, QWK
     Route: 065
     Dates: start: 20190420
  2. OXAROL [Concomitant]
     Active Substance: MAXACALCITOL
     Dosage: 2.5 MICROGRAM, QWK
     Route: 042
     Dates: start: 20190613, end: 20190627
  3. EPOETIN ALFA [Concomitant]
     Active Substance: ERYTHROPOIETIN
     Dosage: 3000 INTERNATIONAL UNIT, QWK
     Route: 065
     Dates: end: 20181124
  4. OXAROL [Concomitant]
     Active Substance: MAXACALCITOL
     Dosage: 5 MICROGRAM, 2 TIMES/WK
     Route: 042
     Dates: start: 20190706
  5. OXAROL [Concomitant]
     Active Substance: MAXACALCITOL
     Dosage: 2.5 MICROGRAM, QWK
     Route: 042
     Dates: start: 20190704
  6. FESIN [SACCHARATED IRON OXIDE] [Concomitant]
     Dosage: 40 MILLIGRAM, QWK
     Route: 065
     Dates: end: 20181002
  7. EPOETIN ALFA [Concomitant]
     Active Substance: ERYTHROPOIETIN
     Dosage: 2250 INTERNATIONAL UNIT, QWK
     Route: 065
     Dates: start: 20190420
  8. WARFARIN [Concomitant]
     Active Substance: WARFARIN
     Dosage: 2 MILLIGRAM, QD
     Route: 065
     Dates: start: 20190424, end: 20190508
  9. EPOETIN ALFA [Concomitant]
     Active Substance: ERYTHROPOIETIN
     Dosage: 4500 INTERNATIONAL UNIT, QWK
     Route: 065
     Dates: start: 20181127, end: 20190418
  10. RENAGEL [Concomitant]
     Active Substance: SEVELAMER HYDROCHLORIDE
     Dosage: 1500 MILLIGRAM, QD
     Route: 065
     Dates: end: 20190520
  11. RENAGEL [Concomitant]
     Active Substance: SEVELAMER HYDROCHLORIDE
     Dosage: 1000 MILLIGRAM, QD
     Route: 065
     Dates: start: 20190521
  12. FESIN [SACCHARATED IRON OXIDE] [Concomitant]
     Dosage: 40 MILLIGRAM, QWK
     Route: 065
     Dates: start: 20190622, end: 20190720
  13. WARFARIN [Concomitant]
     Active Substance: WARFARIN
     Dosage: 1.5 MILLIGRAM, QD
     Route: 065
     Dates: start: 20190416, end: 20190423
  14. WARFARIN [Concomitant]
     Active Substance: WARFARIN
     Dosage: 2.5 MILLIGRAM, QD
     Route: 065
     Dates: start: 20190509
  15. PARSABIV [Suspect]
     Active Substance: ETELCALCETIDE HYDROCHLORIDE
     Indication: HYPERPARATHYROIDISM SECONDARY
     Dosage: 5 MILLIGRAM, 3 TIMES/WK
     Route: 010
     Dates: start: 20180717
  16. OXAROL [Concomitant]
     Active Substance: MAXACALCITOL
     Dosage: 2.5 MICROGRAM, 3 TIMES/WK
     Route: 042
     Dates: start: 20190420, end: 20190606
  17. OXAROL [Concomitant]
     Active Substance: MAXACALCITOL
     Dosage: 5 MICROGRAM, 2 TIMES/WK
     Route: 042
     Dates: start: 20190608, end: 20190702
  18. CALTAN [Concomitant]
     Active Substance: CALCIUM CARBONATE
     Dosage: 1500 MILLIGRAM, QD
     Route: 048
     Dates: start: 20190423
  19. FOSRENOL [Concomitant]
     Active Substance: LANTHANUM CARBONATE
     Dosage: 1250 MILLIGRAM, QD
     Route: 048
  20. OXAROL [Concomitant]
     Active Substance: MAXACALCITOL
     Dosage: 5 MICROGRAM, 3 TIMES/WK
     Route: 042
     Dates: start: 20180424, end: 20190418

REACTIONS (8)
  - Otitis media [Recovered/Resolved]
  - Skin papilloma [Unknown]
  - Aortic valve stenosis [Recovering/Resolving]
  - Angina pectoris [Recovering/Resolving]
  - Decubitus ulcer [Not Recovered/Not Resolved]
  - Skin ulcer [Not Recovered/Not Resolved]
  - Cardiac failure [Recovering/Resolving]
  - Mitral valve incompetence [Recovering/Resolving]

NARRATIVE: CASE EVENT DATE: 20181116
